FAERS Safety Report 6013495-7 (Version None)
Quarter: 2008Q4

REPORT INFORMATION
  Report Type: 
  Country: None (occurrence: None)
  Receive Date: 20081219
  Receipt Date: 20081215
  Transmission Date: 20090506
  Serious: Yes (Other)
  Sender: FDA-Public Use
  Company Number: IE-PURDUE-GBR_2008_0004681

PATIENT
  Age: 17 Year
  Sex: Female

DRUGS (2)
  1. OXYNORM CAPSULES [Suspect]
     Indication: BREAKTHROUGH PAIN
     Dosage: 10 + 5 MG, SINGLE
     Route: 065
     Dates: end: 20081215
  2. HALOPERIDOL [Concomitant]
     Indication: DRUG USE FOR UNKNOWN INDICATION
     Route: 065

REACTIONS (1)
  - PSYCHOTIC DISORDER [None]
